FAERS Safety Report 12884425 (Version 1)
Quarter: 2016Q4

REPORT INFORMATION
  Report Type: Spontaneous
  Country: US (occurrence: US)
  Receive Date: 20161024
  Receipt Date: 20161024
  Transmission Date: 20170207
  Serious: Yes (Hospitalization)
  Sender: FDA-Public Use
  Company Number: None

PATIENT
  Age: 31 Year
  Sex: Male
  Weight: 130.3 kg

DRUGS (9)
  1. PERPHENAZINE. [Concomitant]
     Active Substance: PERPHENAZINE
  2. CLONIDINE. [Concomitant]
     Active Substance: CLONIDINE
  3. METFORMIN [Concomitant]
     Active Substance: METFORMIN HYDROCHLORIDE
  4. LISINOPRIL. [Concomitant]
     Active Substance: LISINOPRIL
  5. FENOFIBRATE. [Concomitant]
     Active Substance: FENOFIBRATE
  6. NIACIN. [Concomitant]
     Active Substance: NIACIN
  7. PROPRANOLOL [Concomitant]
     Active Substance: PROPRANOLOL\PROPRANOLOL HYDROCHLORIDE
  8. OXCARBAZEPINE. [Concomitant]
     Active Substance: OXCARBAZEPINE
  9. LITHIUM. [Suspect]
     Active Substance: LITHIUM
     Dosage: ?          QUANTITY:GFLOFIFEMOWE;?

REACTIONS (4)
  - Feeding disorder [None]
  - Fluid intake reduced [None]
  - Dysphagia [None]
  - Dysarthria [None]

NARRATIVE: CASE EVENT DATE: 20160809
